FAERS Safety Report 9587549 (Version 2)
Quarter: 2013Q4

REPORT INFORMATION
  Report Type: Report from Study
  Country: JP (occurrence: JP)
  Receive Date: 20131003
  Receipt Date: 20131104
  Transmission Date: 20140711
  Serious: Yes (Other)
  Sender: FDA-Public Use
  Company Number: PHHY2009JP071754

PATIENT
  Age: 74 Year
  Sex: Female

DRUGS (15)
  1. AMN107 [Suspect]
     Indication: CHRONIC MYELOID LEUKAEMIA
     Dosage: 800 MG, DAILY
     Route: 048
     Dates: start: 20090620, end: 20090630
  2. AMN107 [Suspect]
     Dosage: 600 MG, DAILY
     Route: 048
     Dates: start: 20090711, end: 20090717
  3. AMN107 [Suspect]
     Dosage: 400 MG, DAILY
     Route: 048
     Dates: start: 20090718, end: 20091211
  4. AMN107 [Suspect]
     Dosage: 400 MG, DAILY
     Route: 048
     Dates: start: 20091218, end: 20091224
  5. AMN107 [Suspect]
     Dosage: 200 MG, DAILY
     Route: 048
     Dates: start: 20091225, end: 20111021
  6. AMN107 [Suspect]
     Dosage: 600 MG, DAILY
     Route: 048
     Dates: start: 20111022, end: 20111028
  7. AMN107 [Suspect]
     Dosage: 300 MG, DAILY
     Route: 048
     Dates: start: 20111029, end: 20111104
  8. AMN107 [Suspect]
     Dosage: 200 MG, DAILY
     Route: 048
     Dates: start: 20111105
  9. ALCENOL [Concomitant]
     Indication: HYPERTENSION
     Dosage: 25 MG
     Route: 048
     Dates: start: 20090106
  10. NEOMALLERMIN [Concomitant]
     Dosage: 12 MG
     Route: 048
     Dates: start: 20090626, end: 20090911
  11. PALGIN [Concomitant]
     Dosage: 0.5 MG
     Dates: start: 20090626, end: 20090911
  12. TOWARAT [Concomitant]
     Indication: HYPERTENSION
     Dosage: 20 MG
     Route: 048
     Dates: start: 20091022
  13. MUCOSTA [Concomitant]
     Indication: PROPHYLAXIS
     Dosage: 300 MG
     Route: 048
  14. CALONAL [Concomitant]
     Indication: PROPHYLAXIS
     Dosage: 400 MG
     Route: 048
     Dates: end: 20100120
  15. OMEPRAL [Concomitant]
     Indication: PROPHYLAXIS
     Dosage: 20 MG
     Route: 048

REACTIONS (12)
  - Eosinophil count decreased [Recovered/Resolved]
  - Blood pressure increased [Recovering/Resolving]
  - Bronchitis [Recovering/Resolving]
  - Basophil count increased [Recovered/Resolved]
  - Aspartate aminotransferase decreased [Recovered/Resolved]
  - Alanine aminotransferase decreased [Recovered/Resolved]
  - Neutrophil count increased [Recovered/Resolved]
  - Blood potassium increased [Recovered/Resolved]
  - Malaise [Recovered/Resolved]
  - Pruritus [Recovered/Resolved]
  - Blood uric acid increased [Recovered/Resolved]
  - Cough [Recovered/Resolved]
